FAERS Safety Report 10844802 (Version 1)
Quarter: 2015Q1

REPORT INFORMATION
  Report Type: Spontaneous
  Country: US (occurrence: US)
  Receive Date: 20150220
  Receipt Date: 20150220
  Transmission Date: 20150721
  Serious: Yes (Other)
  Sender: FDA-Public Use
  Company Number: US-GILEAD-2015-0136921

PATIENT
  Age: 54 Year
  Sex: Male

DRUGS (4)
  1. GANCICLOVIR. [Concomitant]
     Active Substance: GANCICLOVIR
     Indication: CYTOMEGALOVIRUS INFECTION
     Dosage: UNK
  2. VISTIDE [Suspect]
     Active Substance: CIDOFOVIR
     Indication: CYTOMEGALOVIRUS INFECTION
     Dosage: 5 MG/KG, Q1WK
     Route: 042
  3. VISTIDE [Suspect]
     Active Substance: CIDOFOVIR
     Dosage: 5 MG/KG, Q2WK
     Route: 042
  4. VALGANCICLOVIR [Concomitant]
     Active Substance: VALGANCICLOVIR
     Indication: CYTOMEGALOVIRUS INFECTION
     Dosage: UNK

REACTIONS (4)
  - Viral mutation identified [Unknown]
  - Drug ineffective [Unknown]
  - Nephropathy toxic [Unknown]
  - Off label use [Unknown]
